FAERS Safety Report 20902041 (Version 2)
Quarter: 2022Q3

REPORT INFORMATION
  Report Type: Spontaneous
  Country: US (occurrence: US)
  Receive Date: 20220601
  Receipt Date: 20220818
  Transmission Date: 20221026
  Serious: No
  Sender: FDA-Public Use
  Company Number: US-PFIZER INC-202200768733

PATIENT
  Age: 73 Year
  Sex: Female
  Weight: 51.71 kg

DRUGS (3)
  1. GABAPENTIN [Suspect]
     Active Substance: GABAPENTIN
     Indication: Neuralgia
     Dosage: 100 MG, 3X/DAY
     Dates: start: 202204
  2. ASPIRIN [Concomitant]
     Active Substance: ASPIRIN
     Dosage: UNK
  3. CHOLECALCIFEROL [Concomitant]
     Active Substance: CHOLECALCIFEROL
     Dosage: UNK

REACTIONS (8)
  - Abdominal discomfort [Unknown]
  - Diarrhoea [Not Recovered/Not Resolved]
  - Malaise [Unknown]
  - Pyrexia [Unknown]
  - Weight decreased [Unknown]
  - Body height decreased [Unknown]
  - Product use complaint [Unknown]
  - Off label use [Unknown]

NARRATIVE: CASE EVENT DATE: 20220101
